FAERS Safety Report 19583905 (Version 2)
Quarter: 2021Q3

REPORT INFORMATION
  Report Type: Report from Study
  Country: US (occurrence: US)
  Receive Date: 20210720
  Receipt Date: 20210806
  Transmission Date: 20211014
  Serious: No
  Sender: FDA-Public Use
  Company Number: NVSC2021US147244

PATIENT
  Sex: Male

DRUGS (1)
  1. BEOVU [Suspect]
     Active Substance: BROLUCIZUMAB-DBLL
     Indication: NEOVASCULAR AGE-RELATED MACULAR DEGENERATION
     Dosage: UNK
     Route: 047

REACTIONS (5)
  - Ocular hyperaemia [Unknown]
  - Eye pruritus [Recovering/Resolving]
  - Vision blurred [Recovering/Resolving]
  - Metamorphopsia [Unknown]
  - Eye disorder [Unknown]
